FAERS Safety Report 23697041 (Version 1)
Quarter: 2024Q2

REPORT INFORMATION
  Report Type: Other
  Country: US (occurrence: US)
  Receive Date: 20240402
  Receipt Date: 20240402
  Transmission Date: 20240716
  Serious: Yes (Life-Threatening, Hospitalization, Other)
  Sender: FDA-Public Use
  Company Number: US-Marksans Pharma Limited-2155117

PATIENT
  Age: 53 Year
  Sex: Female

DRUGS (5)
  1. FLUOXETINE [Suspect]
     Active Substance: FLUOXETINE HYDROCHLORIDE
     Indication: Product used for unknown indication
     Route: 048
  2. GABAPENTIN [Suspect]
     Active Substance: GABAPENTIN
     Route: 048
  3. BUPROPION [Suspect]
     Active Substance: BUPROPION
     Route: 048
  4. QUETIAPINE [Suspect]
     Active Substance: QUETIAPINE
     Route: 048
  5. CLONIDINE [Suspect]
     Active Substance: CLONIDINE
     Route: 048

REACTIONS (10)
  - Cardiotoxicity [Recovered/Resolved]
  - Disorganised speech [Unknown]
  - Agitation [Unknown]
  - Serotonin syndrome [Recovered/Resolved]
  - Haemodynamic instability [Recovered/Resolved]
  - Intentional overdose [Unknown]
  - Acute respiratory distress syndrome [Recovered/Resolved]
  - Respiratory failure [Recovered/Resolved]
  - Toxicity to various agents [Unknown]
  - Seizure [Recovered/Resolved]
